FAERS Safety Report 4604128-2 (Version None)
Quarter: 2005Q1

REPORT INFORMATION
  Report Type: 
  Country: None (occurrence: None)
  Receive Date: 20050309
  Receipt Date: 20050309
  Transmission Date: 20050727
  Serious: Yes (Life-Threatening)
  Sender: FDA-Public Use
  Company Number: None

PATIENT
  Age: 78 Year
  Sex: Male
  Weight: 67.2 kg

DRUGS (14)
  1. CEFTRIAXONE [Suspect]
     Dosage: 1 G IV
     Route: 042
     Dates: start: 20041202
  2. AZITHROMYCIN [Suspect]
     Dosage: 500 MG PO
     Route: 048
     Dates: start: 20041202
  3. COUMADIN [Concomitant]
  4. THEOPHYLLINE [Concomitant]
  5. AMIODARONE [Concomitant]
  6. DILTIAZEM [Concomitant]
  7. LASIX [Concomitant]
  8. ALBUTEROL [Concomitant]
  9. SPIRIVA [Concomitant]
  10. PULMICORT [Concomitant]
  11. MUCINEX [Concomitant]
  12. ASPIRIN [Concomitant]
  13. SOLU-MEDROL [Concomitant]
  14. LEVAQUIN [Concomitant]

REACTIONS (8)
  - ANAPHYLACTIC REACTION [None]
  - BRADYCARDIA [None]
  - BRONCHIAL OBSTRUCTION [None]
  - CARDIO-RESPIRATORY ARREST [None]
  - COMA [None]
  - HYPOTENSION [None]
  - OXYGEN SATURATION DECREASED [None]
  - RESPIRATORY FAILURE [None]
